FAERS Safety Report 7278274-1 (Version None)
Quarter: 2011Q1

REPORT INFORMATION
  Report Type: 
  Country: None (occurrence: None)
  Receive Date: 20110131
  Receipt Date: 20110114
  Transmission Date: 20110831
  Serious: Yes (Death, Hospitalization)
  Sender: FDA-Public Use
  Company Number: 2011000280

PATIENT
  Age: 77 Year
  Sex: Male

DRUGS (8)
  1. TOPALGIC [Concomitant]
  2. CYMBALTA [Concomitant]
  3. TARCEVA [Suspect]
     Indication: BILE DUCT CANCER
     Dosage: (10 MG,DAILY),ORAL ; (100 MG,DAILY),ORAL
     Route: 048
     Dates: start: 20090204, end: 20101109
  4. TARCEVA [Suspect]
     Indication: BILE DUCT CANCER
     Dosage: (10 MG,DAILY),ORAL ; (100 MG,DAILY),ORAL
     Route: 048
     Dates: start: 20090204, end: 20101109
  5. OXALIPLATIN [Suspect]
     Indication: BILE DUCT CANCER
     Dosage: INTRAVENOUS
     Route: 042
     Dates: start: 20080806, end: 20090111
  6. GEMCITABINE [Suspect]
     Indication: BILE DUCT CANCER
     Dosage: INTRAVENOUS
     Route: 042
     Dates: start: 20080804, end: 20091109
  7. LYRICA [Concomitant]
  8. ACETAMINOPHEN AND TRAMADOL HCL [Concomitant]

REACTIONS (13)
  - NEOPLASM MALIGNANT [None]
  - RALES [None]
  - RHONCHI [None]
  - METASTASES TO BONE [None]
  - METASTASES TO PLEURA [None]
  - LUNG DISORDER [None]
  - PNEUMOCOCCAL INFECTION [None]
  - COMPUTERISED TOMOGRAM THORAX ABNORMAL [None]
  - LUNG INFECTION [None]
  - PULMONARY FIBROSIS [None]
  - RESPIRATORY DEPRESSION [None]
  - GENERAL PHYSICAL HEALTH DETERIORATION [None]
  - HYPOXIA [None]
